FAERS Safety Report 6539771-7 (Version None)
Quarter: 2010Q1

REPORT INFORMATION
  Report Type: 
  Country: None (occurrence: None)
  Receive Date: 20100115
  Receipt Date: 20100108
  Transmission Date: 20100710
  Serious: Yes (Other)
  Sender: FDA-Public Use
  Company Number: US-PFIZER INC-2009289573

PATIENT
  Sex: Female
  Weight: 95 kg

DRUGS (4)
  1. PROCARDIA [Suspect]
     Indication: HYPERTENSION
     Dosage: 30 MG, 1X/DAY
  2. NIFEDIPINE [Suspect]
     Indication: HYPERTENSION
     Dosage: 30 MG, 1X/DAY
  3. NIFEDIPINE [Suspect]
     Dosage: 60 MG, 1X/DAY
  4. LIPITOR [Suspect]
     Indication: BLOOD CHOLESTEROL INCREASED
     Dosage: UNK

REACTIONS (6)
  - ARTHRALGIA [None]
  - BLOOD CHOLESTEROL INCREASED [None]
  - BLOOD PRESSURE INADEQUATELY CONTROLLED [None]
  - HEADACHE [None]
  - NERVOUSNESS [None]
  - ULCER [None]
